FAERS Safety Report 15640199 (Version 1)
Quarter: 2018Q4

REPORT INFORMATION
  Report Type: Spontaneous
  Country: US (occurrence: US)
  Receive Date: 20181120
  Receipt Date: 20181120
  Transmission Date: 20190205
  Serious: No
  Sender: FDA-Public Use
  Company Number: US-AKRON, INC.-2059093

PATIENT
  Age: 87 Year
  Sex: Male

DRUGS (1)
  1. AKTEN [Suspect]
     Active Substance: LIDOCAINE HYDROCHLORIDE
     Route: 047

REACTIONS (2)
  - Fatigue [None]
  - Asthenia [None]
